FAERS Safety Report 6141316-0 (Version None)
Quarter: 2009Q2

REPORT INFORMATION
  Report Type: 
  Country: None (occurrence: None)
  Receive Date: 20090402
  Receipt Date: 20090331
  Transmission Date: 20091009
  Serious: No
  Sender: FDA-Public Use
  Company Number: JP-EISAI MEDICAL RESEARCH-E2020-04354-SPO-JP

PATIENT
  Age: 82 Year
  Sex: Male

DRUGS (7)
  1. ARICEPT [Suspect]
     Indication: DEMENTIA ALZHEIMER'S TYPE
     Route: 048
     Dates: start: 20070905, end: 20081209
  2. ARICEPT [Suspect]
     Dosage: 5 MG QOD
     Route: 048
     Dates: start: 20081210, end: 20090318
  3. OLMETEC [Concomitant]
     Route: 048
  4. ALLOPURINOL [Concomitant]
     Route: 048
  5. ASPIRIN [Concomitant]
     Route: 048
  6. CONIEL [Concomitant]
     Route: 048
  7. LASIX [Concomitant]
     Route: 048

REACTIONS (2)
  - BRADYCARDIA [None]
  - ELECTROCARDIOGRAM QT PROLONGED [None]
